FAERS Safety Report 6872672-3 (Version None)
Quarter: 2010Q3

REPORT INFORMATION
  Report Type: 
  Country: None (occurrence: None)
  Receive Date: 20100723
  Receipt Date: 20100716
  Transmission Date: 20110219
  Serious: Yes (Hospitalization)
  Sender: FDA-Public Use
  Company Number: GB-ABBOTT-10P-167-0654901-00

PATIENT
  Age: 22 Year
  Sex: Female

DRUGS (2)
  1. ERYTHROMYCIN [Suspect]
     Indication: ASTHMA
  2. PREDNISOLONE [Suspect]
     Indication: ASTHMA

REACTIONS (2)
  - CAESAREAN SECTION [None]
  - KETOACIDOSIS [None]
